FAERS Safety Report 10334935 (Version 6)
Quarter: 2014Q3

REPORT INFORMATION
  Report Type: Spontaneous
  Country: JP (occurrence: JP)
  Receive Date: 20140723
  Receipt Date: 20140929
  Transmission Date: 20150326
  Serious: Yes (Hospitalization)
  Sender: FDA-Public Use
  Company Number: PHHY2014JP085362

PATIENT
  Age: 54 Year
  Sex: Male

DRUGS (15)
  1. CLOZARIL [Suspect]
     Active Substance: CLOZAPINE
     Indication: SCHIZOPHRENIA
     Dosage: 12.5 MG, DAILY
     Route: 048
     Dates: start: 20140618, end: 20140618
  2. CLOZARIL [Suspect]
     Active Substance: CLOZAPINE
     Dosage: 25 MG, DAILY
     Route: 048
     Dates: start: 20140619, end: 20140621
  3. PURSENID [Concomitant]
     Indication: CONSTIPATION
     Dosage: 36 MG, UNK
     Route: 048
     Dates: start: 20140106, end: 20140707
  4. PURSENID [Concomitant]
     Dosage: UNK
  5. SILECE [Concomitant]
     Active Substance: FLUNITRAZEPAM
     Dosage: 2 MG, UNK
     Route: 048
     Dates: start: 20140106, end: 20140707
  6. CLOZARIL [Suspect]
     Active Substance: CLOZAPINE
     Dosage: 75 MG, DAILY
     Route: 048
     Dates: start: 20140626, end: 20140626
  7. CLOZARIL [Suspect]
     Active Substance: CLOZAPINE
     Dosage: 125 MG, DAILY
     Route: 048
     Dates: start: 20140629, end: 20140701
  8. LIMAS [Concomitant]
     Active Substance: LITHIUM CARBONATE
     Dosage: UNK UKN, UNK
  9. TRIPHEDINON [Concomitant]
     Indication: PROPHYLAXIS
     Dosage: 4 MG, UNK
     Route: 048
     Dates: start: 20140106, end: 20140707
  10. TRIPHEDINON [Concomitant]
     Dosage: UNK UKN, UNK
  11. SILECE [Concomitant]
     Active Substance: FLUNITRAZEPAM
     Dosage: UNK UKN, UNK
  12. CLOZARIL [Suspect]
     Active Substance: CLOZAPINE
     Dosage: 50 MG, DAILY
     Route: 048
     Dates: start: 20140622, end: 20140624
  13. CLOZARIL [Suspect]
     Active Substance: CLOZAPINE
     Dosage: 100 MG, DAILY
     Route: 048
     Dates: start: 20140627, end: 20140629
  14. CLOZARIL [Suspect]
     Active Substance: CLOZAPINE
     Dosage: 150 MG, DAILY
     Route: 048
     Dates: start: 20140702, end: 20140704
  15. LIMAS [Concomitant]
     Active Substance: LITHIUM CARBONATE
     Indication: SCHIZOPHRENIA
     Dosage: 600 MG, UNK
     Route: 048
     Dates: start: 20140106, end: 20140707

REACTIONS (14)
  - C-reactive protein increased [Recovered/Resolved]
  - White blood cell count decreased [Not Recovered/Not Resolved]
  - Neutrophil count increased [Not Recovered/Not Resolved]
  - Haematocrit decreased [Unknown]
  - Hyperthermia [Recovered/Resolved]
  - Red blood cell count decreased [Not Recovered/Not Resolved]
  - Haemoglobin decreased [Unknown]
  - Pulmonary oedema [Recovered/Resolved]
  - Lymphocyte count decreased [Recovering/Resolving]
  - Cardiac failure [Recovered/Resolved]
  - Pneumonia viral [Recovered/Resolved]
  - Oxygen saturation decreased [Unknown]
  - Haematocrit increased [Unknown]
  - Nasopharyngitis [Unknown]

NARRATIVE: CASE EVENT DATE: 20140625
